FAERS Safety Report 15196399 (Version 1)
Quarter: 2018Q3

REPORT INFORMATION
  Report Type: Report from Study
  Country: US (occurrence: US)
  Receive Date: 20180725
  Receipt Date: 20180725
  Transmission Date: 20181010
  Serious: Yes (Other)
  Sender: FDA-Public Use
  Company Number: US-BAYER-2018-138484

PATIENT
  Age: 64 Year
  Sex: Male

DRUGS (4)
  1. STIVARGA [Suspect]
     Active Substance: REGORAFENIB
     Indication: COLON CANCER
     Dosage: 80 MG, QD
     Route: 048
     Dates: start: 201806
  2. MORPHINE SULFATE. [Concomitant]
     Active Substance: MORPHINE SULFATE
  3. STIVARGA [Suspect]
     Active Substance: REGORAFENIB
     Indication: COLON CANCER
     Dosage: 40 MG, QD
     Route: 048
     Dates: start: 201806
  4. STIVARGA [Suspect]
     Active Substance: REGORAFENIB
     Indication: COLON CANCER
     Dosage: 160 MG, QD, 21 DAYS ON AND 7 DAYS OFF
     Route: 048
     Dates: start: 201802

REACTIONS (6)
  - Nausea [Recovered/Resolved]
  - Decreased appetite [Recovered/Resolved]
  - Asthenia [Recovered/Resolved]
  - Transfusion [Recovered/Resolved]
  - Diarrhoea [Recovered/Resolved]
  - Weight decreased [None]

NARRATIVE: CASE EVENT DATE: 20180629
